FAERS Safety Report 8291408-5 (Version None)
Quarter: 2012Q2

REPORT INFORMATION
  Report Type: 
  Country: None (occurrence: None)
  Receive Date: 20120417
  Receipt Date: 20120409
  Transmission Date: 20120825
  Serious: Yes (Other)
  Sender: FDA-Public Use
  Company Number: JP-GLAXOSMITHKLINE-B0795326A

PATIENT
  Age: 76 Year
  Sex: Female
  Weight: 46 kg

DRUGS (7)
  1. WARFARIN SODIUM [Concomitant]
     Route: 048
  2. CLONAZEPAM [Concomitant]
     Indication: EPILEPSY
     Dosage: 1.5MG PER DAY
     Route: 048
     Dates: start: 20111114, end: 20111117
  3. EPINASTINE HYDROCHLORIDE [Concomitant]
     Dosage: 40MG PER DAY
     Route: 048
  4. CEFAZOLIN SODIUM [Concomitant]
     Dosage: 3IUAX PER DAY
     Route: 048
  5. LAMICTAL [Suspect]
     Indication: EPILEPSY
     Dosage: 50MG PER DAY
     Route: 048
     Dates: start: 20111018, end: 20111020
  6. LAMICTAL [Suspect]
     Dosage: 100MG PER DAY
     Route: 048
     Dates: start: 20111021, end: 20111026
  7. ASPIRIN [Concomitant]
     Dosage: 100MG PER DAY
     Route: 048

REACTIONS (4)
  - WHITE BLOOD CELL COUNT DECREASED [None]
  - SYSTEMIC CANDIDA [None]
  - NEUTROPHIL COUNT DECREASED [None]
  - NEUTROPENIA [None]
